FAERS Safety Report 4324856-6 (Version None)
Quarter: 2004Q1

REPORT INFORMATION
  Report Type: 
  Country: None (occurrence: None)
  Receive Date: 20040322
  Receipt Date: 20040310
  Transmission Date: 20041129
  Serious: Yes (Hospitalization)
  Sender: FDA-Public Use
  Company Number: 04P-062-0247914-00

PATIENT
  Age: 57 Year
  Sex: Female
  Weight: 45 kg

DRUGS (7)
  1. HUMIRA [Suspect]
     Indication: RHEUMATOID ARTHRITIS
     Dosage: 40 MG, 1 IN 2 WK, SUBCUTANEOUS
     Route: 058
     Dates: start: 20030501, end: 20031001
  2. PREDNISOLONE [Concomitant]
  3. GABAPENTIN [Concomitant]
  4. VALORON [Concomitant]
  5. LEKOVIT CA [Concomitant]
  6. LEFLUNOMIDE [Concomitant]
  7. SAROTEN 50 [Concomitant]

REACTIONS (5)
  - ABSCESS NECK [None]
  - FIBROMATOSIS [None]
  - HEPATITIS [None]
  - IMMUNOGLOBULINS INCREASED [None]
  - VASCULITIS NECROTISING [None]
